FAERS Safety Report 10213637 (Version 1)
Quarter: 2014Q2

REPORT INFORMATION
  Report Type: Spontaneous
  Country: AR (occurrence: None)
  Receive Date: 20140530
  Receipt Date: 20140530
  Transmission Date: 20141212
  Serious: Yes (Death)
  Sender: FDA-Public Use
  Company Number: 2014AR00490

PATIENT
  Sex: 0

DRUGS (5)
  1. CARBOPLATIN (CARBOPLATIN) INJECTION [Suspect]
     Indication: RETINOBLASTOMA
     Dosage: 18.7MG/KG ON DAY 1
  2. VINCRISTINE (VINCRISTINE) [Suspect]
     Indication: RETINOBLASTOMA
     Dosage: 0.05MG/KG, ON DAY 1
  3. ETOPOSIDE (ETOPOSIDE) [Suspect]
     Indication: RETINOBLASTOMA
     Dosage: 3.3 MG/KG, PER DAY, ON DAYS 1 AND 2
  4. EXTERNAL BEAM ORBITAL RADIOTHERAPY (EXTERNAL BEAM ORBITAL RADIOTHERAPY) [Suspect]
     Indication: RETINOBLASTOMA
     Dosage: 45GY UP TO THE CHIASM
  5. TOPOTECAN (TOPOTECAN) [Suspect]
     Indication: RETINOBLASTOMA

REACTIONS (2)
  - Retinoblastoma [None]
  - Disease progression [None]
